FAERS Safety Report 5094827-3 (Version None)
Quarter: 2006Q3

REPORT INFORMATION
  Report Type: 
  Country: None (occurrence: None)
  Receive Date: 20060830
  Receipt Date: 20060830
  Transmission Date: 20061208
  Serious: Yes (Other)
  Sender: FDA-Public Use
  Company Number: None

PATIENT
  Age: 65 Year
  Sex: Male
  Weight: 92.9874 kg

DRUGS (5)
  1. COUMADIN [Suspect]
     Indication: ANTICOAGULANT THERAPY
     Dosage: 1.5 TABLETS   EVERY OTHER DAY   ORALLY
     Route: 048
  2. OMEPRAZOLE [Concomitant]
  3. LISINOPRIL [Concomitant]
  4. SIMVASTATIN [Concomitant]
  5. DILTIAZEM HCL [Concomitant]

REACTIONS (4)
  - CHILLS [None]
  - DIARRHOEA [None]
  - HAEMORRHAGE [None]
  - SOMNOLENCE [None]
